FAERS Safety Report 7527083-4 (Version None)
Quarter: 2011Q2

REPORT INFORMATION
  Report Type: 
  Country: None (occurrence: None)
  Receive Date: 20110606
  Receipt Date: 20110526
  Transmission Date: 20111010
  Serious: Yes (Other)
  Sender: FDA-Public Use
  Company Number: US-MYLANLABS-2011S1011153

PATIENT
  Sex: Male

DRUGS (4)
  1. DILTIAZEM [Suspect]
     Indication: BLOOD PRESSURE ABNORMAL
  2. LIPITOR [Suspect]
     Indication: BLOOD CHOLESTEROL INCREASED
     Route: 048
     Dates: start: 20100101, end: 20110101
  3. MAXZIDE [Suspect]
     Indication: BLOOD PRESSURE ABNORMAL
     Route: 048
  4. LIPITOR [Suspect]
     Indication: BLOOD TRIGLYCERIDES INCREASED
     Route: 048
     Dates: start: 20100101, end: 20110101

REACTIONS (4)
  - WRONG TECHNIQUE IN DRUG USAGE PROCESS [None]
  - MYALGIA [None]
  - DRUG INTERACTION [None]
  - MUSCLE ATROPHY [None]
